FAERS Safety Report 18319784 (Version 2)
Quarter: 2020Q4

REPORT INFORMATION
  Report Type: Spontaneous
  Country: GR (occurrence: GR)
  Receive Date: 20200928
  Receipt Date: 20201103
  Transmission Date: 20210113
  Serious: Yes (Death, Life-Threatening, Hospitalization, Other)
  Sender: FDA-Public Use
  Company Number: GR-ADVANZ PHARMA-202009008849

PATIENT

DRUGS (5)
  1. DEXAMETHASONE. [Suspect]
     Active Substance: DEXAMETHASONE
     Indication: GRANULOMATOSIS WITH POLYANGIITIS
     Dosage: 15 MG, QD (LOW DOSE)
  2. PREDNISOLONE. [Suspect]
     Active Substance: PREDNISOLONE
     Indication: IMMUNOSUPPRESSANT DRUG THERAPY
     Dosage: UNK (DAILY DOSE WAS GRADUALLY REDUCED)
  3. PREDNISOLONE. [Suspect]
     Active Substance: PREDNISOLONE
     Indication: GRANULOMATOSIS WITH POLYANGIITIS
     Dosage: 50 MG, QD (MAINTENANCE DOSE)
  4. METHYLPREDNISOLONE. [Suspect]
     Active Substance: METHYLPREDNISOLONE
     Indication: GRANULOMATOSIS WITH POLYANGIITIS
     Dosage: 1 G, QD (HIGH DOSE)
  5. CYCLOPHOSPHAMIDE. [Suspect]
     Active Substance: CYCLOPHOSPHAMIDE
     Indication: IMMUNOSUPPRESSANT DRUG THERAPY
     Dosage: 700 MG, (HIGH DOSE)

REACTIONS (7)
  - Acinetobacter test positive [Fatal]
  - Immunosuppression [Fatal]
  - Multiple organ dysfunction syndrome [Fatal]
  - Off label use [Fatal]
  - Leukopenia [Unknown]
  - Septic shock [Fatal]
  - Thrombocytopenia [Unknown]
